FAERS Safety Report 4947679-3 (Version None)
Quarter: 2006Q1

REPORT INFORMATION
  Report Type: 
  Country: None (occurrence: None)
  Receive Date: 20060310
  Receipt Date: 20060302
  Transmission Date: 20060701
  Serious: Yes (Hospitalization, Other)
  Sender: FDA-Public Use
  Company Number: 230001M06TWN

PATIENT
  Sex: Male

DRUGS (1)
  1. REBIF [Suspect]
     Dates: start: 20051201

REACTIONS (2)
  - HYPOAESTHESIA [None]
  - LUNG NEOPLASM MALIGNANT [None]
